FAERS Safety Report 8367552-0 (Version None)
Quarter: 2012Q1

REPORT INFORMATION
  Report Type: 
  Country: None (occurrence: None)
  Receive Date: 20120323
  Receipt Date: 20111003
  Transmission Date: 20120608
  Serious: Yes (Hospitalization, Other)
  Sender: FDA-Public Use
  Company Number: 163-21880-11072633

PATIENT
  Age: 52 Year
  Sex: Male

DRUGS (6)
  1. LEVAQUIN [Concomitant]
  2. VFEND [Concomitant]
  3. REVLIMID [Suspect]
     Indication: MYELODYSPLASTIC SYNDROME
     Dosage: 5 MG, 1 IN 1 D, PO
     Route: 048
     Dates: start: 20110624, end: 20110706
  4. REVLIMID [Suspect]
     Indication: PLATELET COUNT DECREASED
     Dosage: 5 MG, 1 IN 1 D, PO
     Route: 048
     Dates: start: 20110624, end: 20110706
  5. ACYCLOVIR [Concomitant]
  6. PROTONIX [Concomitant]

REACTIONS (2)
  - NEUTROPHIL COUNT DECREASED [None]
  - PNEUMONITIS [None]
